FAERS Safety Report 9296324 (Version 2)
Quarter: 2013Q2

REPORT INFORMATION
  Report Type: Report from Study
  Country: US (occurrence: US)
  Receive Date: 20130517
  Receipt Date: 20130617
  Transmission Date: 20140414
  Serious: Yes (Life-Threatening, Hospitalization)
  Sender: FDA-Public Use
  Company Number: US-US-EMD SERONO, INC.-7211397

PATIENT
  Age: 56 Year
  Sex: Male
  Weight: 89 kg

DRUGS (2)
  1. REBIF [Suspect]
     Indication: MULTIPLE SCLEROSIS
     Route: 058
     Dates: start: 20090511
  2. ZOCOR [Concomitant]
     Indication: HIGH DENSITY LIPOPROTEIN
     Route: 048

REACTIONS (1)
  - Pulmonary embolism [Recovered/Resolved]
